FAERS Safety Report 23242531 (Version 1)
Quarter: 2023Q4

REPORT INFORMATION
  Report Type: Report from Study
  Country: US (occurrence: US)
  Receive Date: 20231129
  Receipt Date: 20231129
  Transmission Date: 20240110
  Serious: Yes (Hospitalization, Other)
  Sender: FDA-Public Use
  Company Number: US-ABBVIE-5517668

PATIENT
  Sex: Male

DRUGS (3)
  1. VENCLEXTA [Suspect]
     Active Substance: VENETOCLAX
     Indication: Acute erythroid leukaemia
     Dosage: TAKE 4 TABLETS BY MOUTH ONCE DAILY WITH FOOD AND A FULL GLASS OF WATER, ?FORM STRENGTH - 100 MG
     Route: 048
  2. VENCLEXTA [Suspect]
     Active Substance: VENETOCLAX
     Indication: Acute erythroid leukaemia
     Dosage: FORM STRENGTH - 100 MG (DOSE REDUCED TO 1 PILL A DAY)
     Route: 048
  3. VENCLEXTA [Suspect]
     Active Substance: VENETOCLAX
     Indication: Acute erythroid leukaemia
     Dosage: FORM STRENGTH -  100 MG (DOSE REDUCED TO 2 PILLS A DAY)
     Route: 048

REACTIONS (5)
  - Adverse reaction [Recovering/Resolving]
  - Diarrhoea [Recovering/Resolving]
  - Heart rate decreased [Recovering/Resolving]
  - Seizure [Recovering/Resolving]
  - Blood pressure abnormal [Recovering/Resolving]
